FAERS Safety Report 13616532 (Version 1)
Quarter: 2017Q2

REPORT INFORMATION
  Report Type: Spontaneous
  Country: US (occurrence: US)
  Receive Date: 20170606
  Receipt Date: 20170606
  Transmission Date: 20170830
  Serious: No
  Sender: FDA-Public Use
  Company Number: US-SA-2016SA087092

PATIENT
  Sex: Female

DRUGS (3)
  1. NOVOLOG [Concomitant]
     Active Substance: INSULIN ASPART
     Dosage: DOSE:45 UNIT(S)
  2. LANTUS [Suspect]
     Active Substance: INSULIN GLARGINE
     Dosage: DOSE:50 UNIT(S)
     Route: 065
  3. OLANZAPINE. [Interacting]
     Active Substance: OLANZAPINE
     Dosage: STRENGHT:10MG
     Route: 065

REACTIONS (6)
  - Abdominal pain upper [Unknown]
  - Drug resistance [Unknown]
  - Back pain [Unknown]
  - Drug interaction [Unknown]
  - Product use issue [Unknown]
  - Blood pressure increased [Unknown]
